FAERS Safety Report 5136195-4 (Version None)
Quarter: 2006Q4

REPORT INFORMATION
  Report Type: 
  Country: None (occurrence: None)
  Receive Date: 20061027
  Receipt Date: 20061019
  Transmission Date: 20070319
  Serious: Yes (Death)
  Sender: FDA-Public Use
  Company Number: PHBS2006TH16206

PATIENT
  Age: 37 Year
  Sex: Female

DRUGS (2)
  1. GLEEVEC [Suspect]
     Indication: BLAST CRISIS IN MYELOGENOUS LEUKAEMIA
     Dosage: 600 MG/DAY
     Route: 048
     Dates: start: 20000822, end: 20041124
  2. DASATINIB [Concomitant]
     Dosage: 50 MG, BID
     Dates: start: 20050629, end: 20051001

REACTIONS (3)
  - ABDOMINAL PAIN [None]
  - HEPATIC NEOPLASM MALIGNANT [None]
  - HEPATOMEGALY [None]
